FAERS Safety Report 12491795 (Version 2)
Quarter: 2018Q2

REPORT INFORMATION
  Report Type: Spontaneous
  Country: FR (occurrence: FR)
  Receive Date: 20160623
  Receipt Date: 20180507
  Transmission Date: 20180711
  Serious: Yes (Hospitalization)
  Sender: FDA-Public Use
  Company Number: FR-AMGEN-FRASP2016079296

PATIENT
  Age: 64 Year
  Sex: Male
  Weight: 61 kg

DRUGS (7)
  1. KARDEGIC [Concomitant]
     Active Substance: ASPIRIN DL-LYSINE
     Dosage: 160 MG, QD
     Route: 065
  2. FOLINIC ACID [Suspect]
     Active Substance: LEUCOVORIN
     Indication: COLORECTAL ADENOCARCINOMA
     Dosage: UNK
     Route: 042
     Dates: start: 20160316, end: 20160427
  3. CAMPTO [Suspect]
     Active Substance: IRINOTECAN
     Indication: COLORECTAL ADENOCARCINOMA
     Dosage: UNK
     Route: 042
     Dates: start: 20160316, end: 20160427
  4. VECTIBIX [Suspect]
     Active Substance: PANITUMUMAB
     Indication: COLORECTAL ADENOCARCINOMA
     Dosage: UNK
     Route: 042
     Dates: start: 20160316, end: 20160427
  5. FLUOROURACILE [Suspect]
     Active Substance: FLUOROURACIL
     Indication: COLORECTAL ADENOCARCINOMA
     Dosage: UNK
     Route: 042
     Dates: start: 20160316, end: 20160427
  6. PROCORALAN [Concomitant]
     Active Substance: IVABRADINE
     Dosage: 5 MG, QD
     Route: 065
  7. ATORVASTATINE [Concomitant]
     Active Substance: ATORVASTATIN
     Dosage: 10 UNK, QD
     Route: 065

REACTIONS (1)
  - Perioral dermatitis [Recovered/Resolved]

NARRATIVE: CASE EVENT DATE: 201603
